FAERS Safety Report 4416691-5 (Version None)
Quarter: 2004Q2

REPORT INFORMATION
  Report Type: 
  Country: None (occurrence: None)
  Receive Date: 20040630
  Receipt Date: 20030828
  Transmission Date: 20050107
  Serious: Yes (Hospitalization)
  Sender: FDA-Public Use
  Company Number: WAES 0309USA00034

PATIENT
  Age: 65 Year
  Sex: Male
  Weight: 103.8737 kg

DRUGS (9)
  1. HYZAAR [Suspect]
     Indication: HYPERTENSION
     Dosage: 100-25 MG/DAILY/PO
     Route: 048
     Dates: start: 20030814, end: 20030817
  2. ATACAND [Concomitant]
  3. AVANDIA [Concomitant]
  4. ECOTRIN [Concomitant]
  5. GLUCOTROL [Concomitant]
  6. PROTONIX [Concomitant]
  7. SYNTHROID [Concomitant]
  8. TOPROL-XL [Concomitant]
  9. VICODIN [Concomitant]

REACTIONS (3)
  - DIABETES MELLITUS [None]
  - DRUG ERUPTION [None]
  - PRURITUS [None]
